FAERS Safety Report 8801076 (Version 1)
Quarter: 2012Q4

REPORT INFORMATION
  Report Type: 
  Country: US (occurrence: US)
  Receive Date: 20120921
  Receipt Date: 20120921
  Transmission Date: 20130627
  Serious: Yes (Other)
  Sender: FDA-Public Use
  Company Number: US-BRISTOL-MYERS SQUIBB COMPANY-16955197

PATIENT
  Sex: Male

DRUGS (1)
  1. ONGLYZA TABS [Suspect]

REACTIONS (2)
  - Depression [Unknown]
  - Suicidal ideation [Unknown]
